FAERS Safety Report 8172811-0 (Version None)
Quarter: 2012Q1

REPORT INFORMATION
  Report Type: 
  Country: None (occurrence: None)
  Receive Date: 20120223
  Receipt Date: 20120214
  Transmission Date: 20120608
  Serious: Yes (Hospitalization)
  Sender: FDA-Public Use
  Company Number: 2011MA011964

PATIENT
  Age: 73 Year
  Sex: Female

DRUGS (3)
  1. GENTAMICIN [Suspect]
     Dosage: IV
     Dates: start: 20110501
  2. METFORMIN HYDROCHLORIDE [Suspect]
     Dosage: PO
     Route: 048
     Dates: start: 20110501
  3. DIOVAN [Suspect]
     Dosage: PO
     Dates: start: 20110501

REACTIONS (3)
  - RENAL FAILURE [None]
  - DIALYSIS [None]
  - DEHYDRATION [None]
